FAERS Safety Report 7304402-5 (Version None)
Quarter: 2011Q1

REPORT INFORMATION
  Report Type: 
  Country: None (occurrence: None)
  Receive Date: 20110221
  Receipt Date: 20110209
  Transmission Date: 20110831
  Serious: Yes (Hospitalization, Other)
  Sender: FDA-Public Use
  Company Number: US-ELI_LILLY_AND_COMPANY-US201007006811

PATIENT
  Sex: Female

DRUGS (3)
  1. FORTEO [Suspect]
     Dosage: 20 UG, DAILY (1/D)
  2. FERROUS SULFATE TAB [Concomitant]
     Indication: ANAEMIA
  3. FORTEO [Suspect]
     Indication: OSTEOPOROSIS
     Dosage: 20 UG, DAILY (1/D)

REACTIONS (5)
  - FALL [None]
  - MOBILITY DECREASED [None]
  - LOSS OF CONSCIOUSNESS [None]
  - DYSSTASIA [None]
  - BLOOD PRESSURE FLUCTUATION [None]
